FAERS Safety Report 10101243 (Version 3)
Quarter: 2014Q2

REPORT INFORMATION
  Report Type: Spontaneous
  Country: US (occurrence: None)
  Receive Date: 20140422
  Receipt Date: 20140430
  Transmission Date: 20141212
  Serious: Yes (Hospitalization, Other)
  Sender: FDA-Public Use
  Company Number: ADR-2014-00657

PATIENT
  Age: 92 Year
  Sex: Female

DRUGS (2)
  1. COMPOUNDED BACLOFEN [Suspect]
     Indication: PAIN
  2. SUFENTANIL [Suspect]
     Indication: PAIN

REACTIONS (51)
  - Overdose [None]
  - Device battery issue [None]
  - Lethargy [None]
  - Hypotension [None]
  - Fall [None]
  - Compression fracture [None]
  - Device breakage [None]
  - Device infusion issue [None]
  - Device malfunction [None]
  - Fractured sacrum [None]
  - Hypoaesthesia [None]
  - Back pain [None]
  - Activities of daily living impaired [None]
  - Gastrointestinal sounds abnormal [None]
  - Confusional state [None]
  - Mental status changes [None]
  - Pallor [None]
  - Oxygen saturation decreased [None]
  - Skin discolouration [None]
  - Hypotension [None]
  - Respiratory depression [None]
  - Peripheral swelling [None]
  - Oedema [None]
  - Insomnia [None]
  - Fluid retention [None]
  - Drug withdrawal syndrome [None]
  - Arthritis [None]
  - Asthenia [None]
  - Refusal of treatment by patient [None]
  - Headache [None]
  - Gait disturbance [None]
  - Adhesion [None]
  - Contusion [None]
  - Tenderness [None]
  - Mobility decreased [None]
  - Anxiety [None]
  - Stress [None]
  - Abnormal behaviour [None]
  - Injection site pain [None]
  - Catatonia [None]
  - Muscle rigidity [None]
  - Pain in extremity [None]
  - Joint swelling [None]
  - Sciatica [None]
  - Musculoskeletal pain [None]
  - Pain in extremity [None]
  - Bursitis [None]
  - Neuralgia [None]
  - Musculoskeletal pain [None]
  - Arthralgia [None]
  - Rotator cuff syndrome [None]
